FAERS Safety Report 23772289 (Version 1)
Quarter: 2024Q2

REPORT INFORMATION
  Report Type: Report from Study
  Country: US (occurrence: US)
  Receive Date: 20240423
  Receipt Date: 20240423
  Transmission Date: 20240716
  Serious: Yes (Hospitalization, Other)
  Sender: FDA-Public Use
  Company Number: US-OTSUKA PHARMACEUTICAL NETHERLANDS B.V.-AUR-005656

PATIENT
  Age: 19 Year
  Sex: Female

DRUGS (1)
  1. LUPKYNIS [Suspect]
     Active Substance: VOCLOSPORIN
     Indication: Lupus nephritis
     Dosage: 23.7 MILLIGRAM, BID
     Route: 048
     Dates: start: 202304, end: 202404

REACTIONS (4)
  - Intestinal obstruction [Unknown]
  - Vomiting [Unknown]
  - Systemic lupus erythematosus [Unknown]
  - Renal impairment [Unknown]

NARRATIVE: CASE EVENT DATE: 20240201
